FAERS Safety Report 21590411 (Version 1)
Quarter: 2022Q4

REPORT INFORMATION
  Report Type: Spontaneous
  Country: US (occurrence: None)
  Receive Date: 20221111
  Receipt Date: 20221111
  Transmission Date: 20230112
  Serious: No
  Sender: FDA-Public Use
  Company Number: None

PATIENT
  Age: 23 Year
  Sex: Female
  Weight: 108.9 kg

DRUGS (7)
  1. DUPIXENT [Suspect]
     Active Substance: DUPILUMAB
     Indication: Dermatitis atopic
     Dosage: FREQUENCY : EVERY OTHER WEEK;?
     Route: 058
     Dates: start: 20221021
  2. amitripyline [Concomitant]
     Dates: start: 20221003
  3. LORATADINE [Concomitant]
     Active Substance: LORATADINE
     Dates: start: 20221003
  4. METFORMIN [Concomitant]
     Active Substance: METFORMIN HYDROCHLORIDE
     Dates: start: 20221003
  5. MYRBETRIQ [Concomitant]
     Active Substance: MIRABEGRON
     Dates: start: 20221020
  6. PANTOPRAZOLE [Concomitant]
     Active Substance: PANTOPRAZOLE
     Dates: start: 20221020
  7. TOPIRAMATE [Concomitant]
     Active Substance: TOPIRAMATE
     Dates: start: 20221003

REACTIONS (2)
  - Injection site rash [None]
  - Injection site eczema [None]

NARRATIVE: CASE EVENT DATE: 20221023
